FAERS Safety Report 20186634 (Version 2)
Quarter: 2025Q2

REPORT INFORMATION
  Report Type: Report from Study
  Country: US (occurrence: US)
  Receive Date: 20211215
  Receipt Date: 20250424
  Transmission Date: 20250716
  Serious: Yes (Disabling, Other)
  Sender: SANOFI AVENTIS
  Company Number: US-SANOFI-00370903

PATIENT
  Age: 43 Year
  Sex: Female

DRUGS (1)
  1. ALEMTUZUMAB [Suspect]
     Active Substance: ALEMTUZUMAB
     Indication: Multiple sclerosis
     Dosage: 12 MG, QD
     Route: 041
     Dates: start: 20201102, end: 20201106

REACTIONS (31)
  - Bedridden [Unknown]
  - Loss of control of legs [Unknown]
  - Hemiparesis [Unknown]
  - Peroneal nerve palsy [Unknown]
  - Autoimmune disorder [Unknown]
  - Urinary incontinence [Unknown]
  - Muscular weakness [Unknown]
  - Anal incontinence [Unknown]
  - Food aversion [Unknown]
  - Pallor [Unknown]
  - Feeling cold [Not Recovered/Not Resolved]
  - Malaise [Unknown]
  - Asthenia [Not Recovered/Not Resolved]
  - Pruritus [Recovered/Resolved]
  - Headache [Recovered/Resolved]
  - Urticaria [Recovered/Resolved]
  - Fatigue [Unknown]
  - Vomiting [Unknown]
  - Brain fog [Unknown]
  - Visual impairment [Unknown]
  - Musculoskeletal disorder [Unknown]
  - Grip strength decreased [Recovering/Resolving]
  - Balance disorder [Unknown]
  - Fall [Unknown]
  - Arthropathy [Recovering/Resolving]
  - Gait disturbance [Recovering/Resolving]
  - Paraesthesia [Unknown]
  - Cough [Unknown]
  - Oropharyngeal pain [Not Recovered/Not Resolved]
  - Muscular weakness [Unknown]
  - Therapeutic response decreased [Unknown]

NARRATIVE: CASE EVENT DATE: 20201101
